FAERS Safety Report 7386066-8 (Version None)
Quarter: 2011Q1

REPORT INFORMATION
  Report Type: 
  Country: None (occurrence: None)
  Receive Date: 20110331
  Receipt Date: 20110322
  Transmission Date: 20110831
  Serious: Yes (Other)
  Sender: FDA-Public Use
  Company Number: DE-JNJFOC-20110307884

PATIENT
  Sex: Female
  Weight: 70 kg

DRUGS (4)
  1. MORPHINE [Suspect]
     Indication: ILL-DEFINED DISORDER
     Route: 048
     Dates: start: 20110322, end: 20110322
  2. GABAPENTIN [Suspect]
     Indication: ILL-DEFINED DISORDER
     Route: 048
     Dates: start: 20110322, end: 20110322
  3. TRAMAL [Suspect]
     Indication: PRODUCT USED FOR UNKNOWN INDICATION
     Route: 065
  4. DIPIPERON [Suspect]
     Indication: ILL-DEFINED DISORDER
     Route: 048
     Dates: start: 20110322, end: 20110322

REACTIONS (3)
  - MULTIPLE DRUG OVERDOSE INTENTIONAL [None]
  - SUICIDE ATTEMPT [None]
  - FATIGUE [None]
